FAERS Safety Report 12188404 (Version 2)
Quarter: 2016Q2

REPORT INFORMATION
  Report Type: Spontaneous
  Country: ES (occurrence: ES)
  Receive Date: 20160317
  Receipt Date: 20160516
  Transmission Date: 20160815
  Serious: Yes (Hospitalization)
  Sender: FDA-Public Use
  Company Number: ES-SHIRE-ES201601957

PATIENT
  Age: 17 Year
  Sex: Female
  Weight: 54 kg

DRUGS (4)
  1. ELVANSE [Suspect]
     Active Substance: LISDEXAMFETAMINE DIMESYLATE
     Dosage: 30 MG, 1X/DAY:QD
     Route: 048
     Dates: start: 20141204, end: 201412
  2. ELVANSE [Suspect]
     Active Substance: LISDEXAMFETAMINE DIMESYLATE
     Indication: ATTENTION DEFICIT/HYPERACTIVITY DISORDER
     Dosage: 70 MG, 1X/DAY:QD
     Route: 048
     Dates: start: 20150115, end: 201508
  3. ELVANSE [Suspect]
     Active Substance: LISDEXAMFETAMINE DIMESYLATE
     Dosage: 100 MG, 1X/DAY:QD
     Route: 048
     Dates: start: 20150818, end: 20160121
  4. ELVANSE [Suspect]
     Active Substance: LISDEXAMFETAMINE DIMESYLATE
     Dosage: 50 MG, 1X/DAY:QD
     Route: 048
     Dates: start: 201412, end: 201501

REACTIONS (3)
  - Prescribed overdose [Recovered/Resolved]
  - Drug effect decreased [Recovered/Resolved]
  - Peripheral ischaemia [Not Recovered/Not Resolved]

NARRATIVE: CASE EVENT DATE: 20150818
